FAERS Safety Report 8269616-9 (Version None)
Quarter: 2012Q2

REPORT INFORMATION
  Report Type: 
  Country: None (occurrence: None)
  Receive Date: 20120410
  Receipt Date: 20120328
  Transmission Date: 20120825
  Serious: Yes (Hospitalization)
  Sender: FDA-Public Use
  Company Number: US-BIOGENIDEC-2011BI046843

PATIENT
  Age: 50 Year
  Sex: Female

DRUGS (4)
  1. TYSABRI [Suspect]
     Indication: MULTIPLE SCLEROSIS
     Route: 042
     Dates: start: 20110317
  2. CELEXA [Concomitant]
  3. MILONTIN [Concomitant]
  4. DIAZEPAM [Concomitant]

REACTIONS (12)
  - NAUSEA [None]
  - VOMITING [None]
  - ESCHERICHIA BACTERAEMIA [None]
  - NEPHROLITHIASIS [None]
  - DIZZINESS [None]
  - BODY TEMPERATURE INCREASED [None]
  - URINARY RETENTION [None]
  - CHROMATURIA [None]
  - MULTIPLE SCLEROSIS RELAPSE [None]
  - SENSATION OF HEAVINESS [None]
  - GAIT DISTURBANCE [None]
  - ESCHERICHIA URINARY TRACT INFECTION [None]
